FAERS Safety Report 5370892-0 (Version None)
Quarter: 2007Q2

REPORT INFORMATION
  Report Type: 
  Country: None (occurrence: None)
  Receive Date: 20070626
  Receipt Date: 20070618
  Transmission Date: 20071010
  Serious: Yes (Life-Threatening, Hospitalization, Other)
  Sender: FDA-Public Use
  Company Number: DE-GENENTECH-241972

PATIENT
  Sex: Female
  Weight: 57 kg

DRUGS (1)
  1. MABTHERA [Suspect]
     Indication: NEOPLASM MALIGNANT
     Dosage: UNK, UNKNOWN
     Route: 065
     Dates: start: 20020101

REACTIONS (1)
  - BULBAR PALSY [None]
